FAERS Safety Report 16929083 (Version 4)
Quarter: 2019Q4

REPORT INFORMATION
  Report Type: Report from Study
  Country: US (occurrence: US)
  Receive Date: 20191017
  Receipt Date: 20191125
  Transmission Date: 20200122
  Serious: Yes (Hospitalization, Other)
  Sender: FDA-Public Use
  Company Number: US-ROCHE-2434471

PATIENT
  Age: 54 Year
  Sex: Female
  Weight: 53.57 kg

DRUGS (6)
  1. AMITRIPTYLINE [Concomitant]
     Active Substance: AMITRIPTYLINE
     Indication: PAIN IN EXTREMITY
     Route: 065
     Dates: start: 201906
  2. OCREVUS [Suspect]
     Active Substance: OCRELIZUMAB
     Dosage: ONGOING: YES
     Route: 042
     Dates: start: 2017
  3. GABAPENTIN. [Concomitant]
     Active Substance: GABAPENTIN
     Indication: PAIN IN EXTREMITY
     Dosage: NO
     Route: 065
     Dates: start: 2016, end: 201906
  4. OCREVUS [Suspect]
     Active Substance: OCRELIZUMAB
     Dosage: ONGOING: NO
     Route: 042
     Dates: start: 2016, end: 2018
  5. VITAMIN B3 [Concomitant]
     Active Substance: NIACIN
     Route: 065
     Dates: start: 2016
  6. OCREVUS [Suspect]
     Active Substance: OCRELIZUMAB
     Indication: RELAPSING-REMITTING MULTIPLE SCLEROSIS
     Route: 042
     Dates: start: 2018

REACTIONS (16)
  - Pancreatitis [Not Recovered/Not Resolved]
  - Heart rate increased [Recovered/Resolved]
  - Muscle twitching [Recovered/Resolved]
  - Gastritis [Unknown]
  - Bladder spasm [Recovering/Resolving]
  - Intentional product use issue [Unknown]
  - Nausea [Not Recovered/Not Resolved]
  - Feeding disorder [Not Recovered/Not Resolved]
  - Fatigue [Recovered/Resolved]
  - Off label use [Unknown]
  - Urinary tract infection [Unknown]
  - Herpes zoster [Recovered/Resolved]
  - Bacterial infection [Not Recovered/Not Resolved]
  - Loss of consciousness [Unknown]
  - Pain [Recovered/Resolved]
  - Malaise [Not Recovered/Not Resolved]

NARRATIVE: CASE EVENT DATE: 2018
